FAERS Safety Report 25747207 (Version 1)
Quarter: 2025Q3

REPORT INFORMATION
  Report Type: Spontaneous
  Country: US (occurrence: US)
  Receive Date: 20250901
  Receipt Date: 20250901
  Transmission Date: 20251020
  Serious: No
  Sender: SANOFI AVENTIS
  Company Number: US-SA-2025SA260407

PATIENT
  Sex: Female

DRUGS (10)
  1. DUPIXENT [Suspect]
     Active Substance: DUPILUMAB
     Indication: Dermatitis atopic
     Dosage: 300 MG, QOW
     Route: 058
  2. VOQUEZNA [Concomitant]
     Active Substance: VONOPRAZAN FUMARATE
  3. CANDESARTAN [Concomitant]
     Active Substance: CANDESARTAN
  4. ESTRACE [Concomitant]
     Active Substance: ESTRADIOL
  5. FEXOFENADINE [Concomitant]
     Active Substance: FEXOFENADINE HYDROCHLORIDE
  6. FISH OIL [Concomitant]
     Active Substance: FISH OIL
  7. MONTELUKAST [Concomitant]
     Active Substance: MONTELUKAST
  8. PRAVASTATIN [Concomitant]
     Active Substance: PRAVASTATIN
  9. MINERALS\VITAMINS [Concomitant]
     Active Substance: MINERALS\VITAMINS
  10. VITAMIN D3 [Concomitant]
     Active Substance: CHOLECALCIFEROL

REACTIONS (2)
  - Dyspepsia [Unknown]
  - Drug ineffective [Unknown]
